FAERS Safety Report 10344193 (Version 1)
Quarter: 2014Q3

REPORT INFORMATION
  Report Type: Spontaneous
  Country: US (occurrence: None)
  Receive Date: 20140725
  Receipt Date: 20140725
  Transmission Date: 20150326
  Serious: Yes (Other)
  Sender: FDA-Public Use
  Company Number: None

PATIENT
  Sex: Female
  Weight: 92.99 kg

DRUGS (2)
  1. PROZAC [Suspect]
     Active Substance: FLUOXETINE HYDROCHLORIDE
     Indication: ANXIETY DISORDER
     Dosage: 10MG   3 OF   PO  QD
     Route: 048
  2. PROZAC [Suspect]
     Active Substance: FLUOXETINE HYDROCHLORIDE
     Indication: IMPULSE-CONTROL DISORDER
     Dosage: 10MG   3 OF   PO  QD
     Route: 048

REACTIONS (5)
  - Irritability [None]
  - Product substitution issue [None]
  - Aggression [None]
  - Agitation [None]
  - Screaming [None]
